FAERS Safety Report 5116255-4 (Version None)
Quarter: 2006Q3

REPORT INFORMATION
  Report Type: 
  Country: None (occurrence: None)
  Receive Date: 20060927
  Receipt Date: 20060920
  Transmission Date: 20061208
  Serious: Yes (Death)
  Sender: FDA-Public Use
  Company Number: US-GLAXOSMITHKLINE-B0439355A

PATIENT
  Age: 27 Year

DRUGS (3)
  1. BUPROPION HCL [Suspect]
     Route: 065
  2. GABAPENTIN [Suspect]
     Route: 065
  3. ZIPRASIDONE HCL [Suspect]
     Route: 065

REACTIONS (1)
  - DEATH [None]
